FAERS Safety Report 8953033 (Version 1)
Quarter: 2012Q4

REPORT INFORMATION
  Report Type: 
  Country: JP (occurrence: JP)
  Receive Date: 20121205
  Receipt Date: 20121205
  Transmission Date: 20130627
  Serious: No
  Sender: FDA-Public Use
  Company Number: JP-JNJFOC-20121012077

PATIENT
  Age: 72 Year
  Sex: Female

DRUGS (2)
  1. DUROTEP MT [Suspect]
     Indication: CANCER PAIN
     Route: 062
  2. ONEDURO [Suspect]
     Indication: CANCER PAIN
     Route: 062

REACTIONS (3)
  - Constipation [Unknown]
  - Somnolence [Unknown]
  - Inappropriate schedule of drug administration [Unknown]
